FAERS Safety Report 7761168-2 (Version None)
Quarter: 2011Q3

REPORT INFORMATION
  Report Type: 
  Country: None (occurrence: None)
  Receive Date: 20110915
  Receipt Date: 20110902
  Transmission Date: 20111222
  Serious: No
  Sender: FDA-Public Use
  Company Number: US-1187755

PATIENT
  Age: 79 Year
  Sex: Male

DRUGS (5)
  1. BRIMONIDINE TARTRATE [Suspect]
     Indication: CATARACT OPERATION
     Dosage: OPHTHALMIC
     Route: 047
     Dates: start: 20110711
  2. EPINEPHRINE [Concomitant]
  3. OMNIPRED [Suspect]
     Indication: CATARACT OPERATION
     Dosage: OPHTHALMIC
     Route: 047
     Dates: start: 20110711
  4. BASS PLUS INTRAOCULAR SOLUTION [Suspect]
     Indication: INTRAOCULAR LENS IMPLANT
     Dosage: INTRAOCULAR
     Route: 031
     Dates: start: 20110711, end: 20110711
  5. TIMOLOL MALEATE [Suspect]
     Indication: CATARACT OPERATION
     Dosage: OPHTHALMIC
     Route: 047
     Dates: start: 20110711

REACTIONS (2)
  - EYE INFLAMMATION [None]
  - POST PROCEDURAL COMPLICATION [None]
